FAERS Safety Report 5202867-6 (Version None)
Quarter: 2006Q4

REPORT INFORMATION
  Report Type: 
  Country: None (occurrence: None)
  Receive Date: 20061016
  Receipt Date: 20060320
  Transmission Date: 20070319
  Serious: Yes (Other)
  Sender: FDA-Public Use
  Company Number: 2006038975

PATIENT
  Age: 49 Year
  Sex: Female
  Weight: 72.5755 kg

DRUGS (13)
  1. NEURONTIN [Suspect]
     Indication: BACK PAIN
     Dosage: 300 MG (100 MG, 3 IN 1 D)
     Dates: start: 20020321, end: 20060307
  2. NEURONTIN [Suspect]
     Indication: SCIATICA
     Dosage: 300 MG (100 MG, 3 IN 1 D)
     Dates: start: 20020321, end: 20060307
  3. LYRICA [Suspect]
     Indication: BACK PAIN
     Dates: start: 20060308
  4. LYRICA [Suspect]
     Indication: SCIATICA
     Dates: start: 20060308
  5. GEMFIBROZIL [Concomitant]
  6. TOPROL-XL [Concomitant]
  7. METHADONE HCL [Concomitant]
  8. ZOLOFT [Concomitant]
  9. NEXIUM [Concomitant]
  10. CENESTIN [Concomitant]
  11. LEVOTHYROXINE SODIUM [Concomitant]
  12. NORTRIPTYLINE HCL [Concomitant]
  13. NABUMETONE [Concomitant]

REACTIONS (3)
  - DIZZINESS [None]
  - DRUG INEFFECTIVE [None]
  - SOMNOLENCE [None]
